FAERS Safety Report 9397521 (Version 1)
Quarter: 2013Q3

REPORT INFORMATION
  Report Type: Spontaneous
  Country: GB (occurrence: GB)
  Receive Date: 20130712
  Receipt Date: 20130712
  Transmission Date: 20140515
  Serious: Yes (Death)
  Sender: FDA-Public Use
  Company Number: GB-ROCHE-1247789

PATIENT
  Age: 55 Year
  Sex: Female
  Weight: 65 kg

DRUGS (5)
  1. CAPECITABINE [Suspect]
     Indication: BREAST CANCER
     Route: 065
     Dates: start: 20130524, end: 20130601
  2. PARACETAMOL [Concomitant]
     Route: 048
  3. CANDESARTAN [Concomitant]
     Route: 048
  4. CITALOPRAM [Concomitant]
     Route: 048
  5. MORPHINE [Concomitant]
     Route: 048

REACTIONS (2)
  - Arteriosclerosis coronary artery [Fatal]
  - Hypertensive cardiomyopathy [Fatal]
